FAERS Safety Report 18704278 (Version 1)
Quarter: 2021Q1

REPORT INFORMATION
  Report Type: Spontaneous
  Country: US (occurrence: US)
  Receive Date: 20210105
  Receipt Date: 20210105
  Transmission Date: 20210419
  Serious: Yes (Hospitalization)
  Sender: FDA-Public Use
  Company Number: US-ABBVIE-21K-163-3714911-00

PATIENT
  Age: 24 Year
  Sex: Female

DRUGS (1)
  1. VALPROIC ACID. [Suspect]
     Active Substance: VALPROIC ACID
     Indication: SEIZURE
     Route: 048

REACTIONS (9)
  - Osmolar gap increased [Unknown]
  - Drug level increased [Recovering/Resolving]
  - Hypernatraemia [Recovered/Resolved]
  - Suicide attempt [Unknown]
  - Hyperammonaemia [Recovered/Resolved]
  - Metabolic acidosis [Recovered/Resolved]
  - Hypocalcaemia [Recovered/Resolved]
  - Toxicity to various agents [Recovering/Resolving]
  - Intentional overdose [Unknown]
